FAERS Safety Report 8608589-3 (Version None)
Quarter: 2012Q3

REPORT INFORMATION
  Report Type: 
  Country: None (occurrence: None)
  Receive Date: 20120809
  Receipt Date: 20120809
  Transmission Date: 20120928
  Serious: Yes (Hospitalization, Disabling)
  Sender: FDA-Public Use
  Company Number: None

PATIENT
  Age: 23 Year
  Sex: Female
  Weight: 54.4316 kg

DRUGS (1)
  1. ACCUTANE [Suspect]
     Indication: ACNE

REACTIONS (1)
  - HYDROCEPHALUS [None]
